FAERS Safety Report 7200372-9 (Version None)
Quarter: 2010Q4

REPORT INFORMATION
  Report Type: 
  Country: None (occurrence: None)
  Receive Date: 20101228
  Receipt Date: 20101220
  Transmission Date: 20110411
  Serious: Yes (Death, Other)
  Sender: FDA-Public Use
  Company Number: JP-BAYER-201012466BYL

PATIENT
  Sex: Male
  Weight: 66 kg

DRUGS (3)
  1. NEXAVAR [Suspect]
     Dosage: 400 MG, BID
     Route: 048
     Dates: start: 20090702, end: 20090706
  2. KADIAN [Concomitant]
     Dosage: SINCE BEFORE ADMINISTRATION
     Route: 048
  3. ALOSENN [Concomitant]
     Dosage: SINCE BEFORE ADMINISTRATION
     Route: 048

REACTIONS (3)
  - DIZZINESS [None]
  - MALIGNANT NEOPLASM PROGRESSION [None]
  - TRANSIENT ISCHAEMIC ATTACK [None]
